FAERS Safety Report 5910832-6 (Version None)
Quarter: 2008Q4

REPORT INFORMATION
  Report Type: 
  Country: None (occurrence: None)
  Receive Date: 20081007
  Receipt Date: 20080925
  Transmission Date: 20090506
  Serious: Yes (Hospitalization, Other)
  Sender: FDA-Public Use
  Company Number: IT-ROCHE-571006

PATIENT
  Sex: Female

DRUGS (3)
  1. PEGASYS [Suspect]
     Dosage: DOSAGE REPORTED AS 180.
     Route: 065
     Dates: start: 20061124
  2. PEGASYS [Suspect]
     Dosage: DOSAGE REDUCED TO 135.
     Route: 065
     Dates: end: 20080423
  3. REBETOL [Suspect]
     Route: 065
     Dates: start: 20061124, end: 20080423

REACTIONS (4)
  - ANAEMIA [None]
  - HAEMATEMESIS [None]
  - OESOPHAGEAL CANDIDIASIS [None]
  - PORTAL HYPERTENSIVE GASTROPATHY [None]
